FAERS Safety Report 22312960 (Version 1)
Quarter: 2023Q2

REPORT INFORMATION
  Report Type: Spontaneous
  Country: US (occurrence: US)
  Receive Date: 20230512
  Receipt Date: 20230512
  Transmission Date: 20230722
  Serious: No
  Sender: FDA-Public Use
  Company Number: US-GLENMARK PHARMACEUTICALS-2023GMK080353

PATIENT

DRUGS (2)
  1. TOPIRAMATE [Suspect]
     Active Substance: TOPIRAMATE
     Indication: Seizure
     Dosage: UNK (TOPIRAMATE TABLET FROM GLENMARK YEARS BACK)
     Route: 065
     Dates: start: 2019, end: 2020
  2. TOPIRAMATE [Suspect]
     Active Substance: TOPIRAMATE
     Dosage: 200 MILLIGRAM, BID
     Route: 048
     Dates: start: 2020

REACTIONS (2)
  - Increased appetite [Unknown]
  - Product substitution issue [Unknown]
